FAERS Safety Report 17190929 (Version 1)
Quarter: 2019Q4

REPORT INFORMATION
  Report Type: Spontaneous
  Country: US (occurrence: US)
  Receive Date: 20191130
  Receipt Date: 20191130
  Transmission Date: 20200122
  Serious: Yes (Disabling)
  Sender: FDA-Public Use
  Company Number: None

PATIENT
  Age: 78 Year
  Sex: Male
  Weight: 69.4 kg

DRUGS (5)
  1. PROLIA [Suspect]
     Active Substance: DENOSUMAB
     Indication: OSTEOPENIA
     Dosage: ?          QUANTITY:ONE INJECTION ;OTHER FREQUENCY:ONE EVERY 6 MONTHS;OTHER ROUTE:INJECTION?
     Dates: start: 20190515, end: 20190515
  2. LISINOPRIL. [Concomitant]
     Active Substance: LISINOPRIL
  3. MULTI VITAMIN [Concomitant]
     Active Substance: VITAMINS
  4. CALCIUM 600 WITH VIT. D [Concomitant]
  5. PREDNISONE. [Concomitant]
     Active Substance: PREDNISONE

REACTIONS (3)
  - Back pain [None]
  - Pain in extremity [None]
  - Arthralgia [None]

NARRATIVE: CASE EVENT DATE: 20190809
